FAERS Safety Report 6510507-9 (Version None)
Quarter: 2009Q4

REPORT INFORMATION
  Report Type: 
  Country: None (occurrence: None)
  Receive Date: 20091222
  Receipt Date: 20091215
  Transmission Date: 20100525
  Serious: Yes (Hospitalization, Disabling, Other)
  Sender: FDA-Public Use
  Company Number: US-MERCK-0806USA08536

PATIENT
  Age: 63 Year
  Sex: Female

DRUGS (4)
  1. FOSAMAX [Suspect]
     Indication: OSTEOPENIA
     Route: 048
     Dates: start: 19960401
  2. FOSAMAX [Suspect]
     Route: 048
     Dates: start: 20040101, end: 20051101
  3. FOSAMAX [Suspect]
     Indication: OSTEOPOROSIS
     Route: 048
     Dates: start: 19960401
  4. FOSAMAX [Suspect]
     Route: 048
     Dates: start: 20040101, end: 20051101

REACTIONS (28)
  - ABSCESS [None]
  - ACQUIRED OESOPHAGEAL WEB [None]
  - BLOOD CHOLESTEROL INCREASED [None]
  - CHOLELITHIASIS [None]
  - COUGH [None]
  - DEHYDRATION [None]
  - DENTAL CARIES [None]
  - DIVERTICULITIS [None]
  - DYSPHAGIA [None]
  - FALL [None]
  - GINGIVAL DISORDER [None]
  - GRANULOMA [None]
  - HYPOTHYROIDISM [None]
  - IMPAIRED HEALING [None]
  - INFLUENZA [None]
  - MYALGIA [None]
  - OSTEOARTHRITIS [None]
  - OSTEOMYELITIS [None]
  - OSTEONECROSIS [None]
  - PAIN IN JAW [None]
  - PERIODONTITIS [None]
  - SEASONAL ALLERGY [None]
  - SINUSITIS [None]
  - SPINAL COMPRESSION FRACTURE [None]
  - TEMPOROMANDIBULAR JOINT SYNDROME [None]
  - TOOTHACHE [None]
  - TRIGEMINAL NEURALGIA [None]
  - URINARY TRACT INFECTION [None]
